FAERS Safety Report 21872016 (Version 1)
Quarter: 2023Q1

REPORT INFORMATION
  Report Type: Spontaneous
  Country: US (occurrence: None)
  Receive Date: 20230114
  Receipt Date: 20230114
  Transmission Date: 20230417
  Serious: Yes (Life-Threatening, Hospitalization)
  Sender: FDA-Public Use
  Company Number: None

PATIENT
  Age: 55 Year
  Sex: Female
  Weight: 63 kg

DRUGS (2)
  1. PROVERA [Suspect]
     Active Substance: MEDROXYPROGESTERONE ACETATE
     Indication: Heavy menstrual bleeding
     Dates: start: 20221122, end: 20221205
  2. LYSTEDA [Suspect]
     Active Substance: TRANEXAMIC ACID
     Indication: Heavy menstrual bleeding
     Dates: start: 20221201, end: 20221205

REACTIONS (6)
  - Drug ineffective [None]
  - Tachycardia [None]
  - Dyspnoea [None]
  - Deep vein thrombosis [None]
  - Pulmonary embolism [None]
  - Drug interaction [None]

NARRATIVE: CASE EVENT DATE: 20221210
